FAERS Safety Report 26049975 (Version 2)
Quarter: 2025Q4

REPORT INFORMATION
  Report Type: Other
  Country: GB (occurrence: GB)
  Receive Date: 20251116
  Receipt Date: 20251118
  Transmission Date: 20260118
  Serious: Yes (Death, Other)
  Sender: GLENMARK
  Company Number: GB-MHRA-37518711

PATIENT
  Sex: Male

DRUGS (2)
  1. OMEPRAZOLE [Interacting]
     Active Substance: OMEPRAZOLE
     Indication: Barrett^s oesophagus
     Dosage: 40 MILLIGRAM
     Route: 065
  2. BRUKINSA [Interacting]
     Active Substance: ZANUBRUTINIB
     Indication: Lymphoma
     Dosage: UNK
     Route: 048

REACTIONS (4)
  - Malignant neoplasm progression [Fatal]
  - Drug interaction [Unknown]
  - Haemoglobin decreased [Unknown]
  - Drug ineffective [Unknown]
